FAERS Safety Report 6718981-X (Version None)
Quarter: 2010Q2

REPORT INFORMATION
  Report Type: 
  Country: None (occurrence: None)
  Receive Date: 20100511
  Receipt Date: 20100504
  Transmission Date: 20101027
  Serious: Yes (Hospitalization, Other)
  Sender: FDA-Public Use
  Company Number: DE-BAYER-200934654GPV

PATIENT
  Age: 26 Year
  Sex: Female

DRUGS (2)
  1. DROSPIRENONE AND ETHINYL ESTRADIOL [Suspect]
     Indication: ORAL CONTRACEPTION
     Route: 048
     Dates: start: 20090701, end: 20090901
  2. SULBACTAM [Concomitant]

REACTIONS (4)
  - LYMPHOMA [None]
  - PLEURISY [None]
  - PNEUMONIA [None]
  - PULMONARY EMBOLISM [None]
